FAERS Safety Report 25030434 (Version 5)
Quarter: 2025Q3

REPORT INFORMATION
  Report Type: Spontaneous
  Country: EU (occurrence: EU)
  Receive Date: 20250303
  Receipt Date: 20250809
  Transmission Date: 20251021
  Serious: Yes (Hospitalization, Disabling, Other)
  Sender: ALEXION PHARMACEUTICALS
  Company Number: None

PATIENT
  Age: 76 Year
  Sex: Male

DRUGS (5)
  1. ROSUVASTATIN [Interacting]
     Active Substance: ROSUVASTATIN
     Indication: Hypercholesterolaemia
     Dosage: 10 MILLIGRAM, 1/DAY
     Dates: start: 2020, end: 202311
  2. ABIRATERONE ACETATE [Interacting]
     Active Substance: ABIRATERONE ACETATE
     Indication: Prostate cancer metastatic
     Dosage: 100 MILLIGRAM, 1/DAY
     Route: 065
     Dates: start: 202110, end: 202311
  3. ABIRATERONE ACETATE [Interacting]
     Active Substance: ABIRATERONE ACETATE
     Indication: Hormone-refractory prostate cancer
  4. PREDNISONE [Concomitant]
     Active Substance: PREDNISONE
     Indication: Prostate cancer metastatic
     Dosage: 10 MILLIGRAM, QD
     Dates: start: 202110
  5. PREDNISONE [Concomitant]
     Active Substance: PREDNISONE
     Indication: Hormone-refractory prostate cancer

REACTIONS (5)
  - Drug interaction [Recovering/Resolving]
  - Rhabdomyolysis [Recovered/Resolved]
  - Acute kidney injury [Recovering/Resolving]
  - Myopathy [Unknown]
  - Hypokalaemia [Recovered/Resolved]

NARRATIVE: CASE EVENT DATE: 20230901
